FAERS Safety Report 8565545-1 (Version None)
Quarter: 2012Q3

REPORT INFORMATION
  Report Type: 
  Country: None (occurrence: None)
  Receive Date: 20120803
  Receipt Date: 20120801
  Transmission Date: 20120928
  Serious: Yes (Hospitalization)
  Sender: FDA-Public Use
  Company Number: US-JNJFOC-20120709474

PATIENT
  Sex: Female
  Weight: 113.4 kg

DRUGS (9)
  1. CARVEDILOL [Concomitant]
  2. LISINOPRIL [Concomitant]
  3. XARELTO [Suspect]
     Indication: ATRIAL FIBRILLATION
     Route: 048
     Dates: start: 20120601, end: 20120101
  4. ASPIRIN [Suspect]
     Route: 048
  5. ASPIRIN [Suspect]
     Indication: PRODUCT USED FOR UNKNOWN INDICATION
     Route: 048
  6. METFORMIN HCL [Concomitant]
  7. ALL OTHER MEDICATIONS [Concomitant]
  8. PLAVIX [Suspect]
     Indication: PRODUCT USED FOR UNKNOWN INDICATION
     Route: 048
     Dates: start: 20120101
  9. XARELTO [Suspect]
     Indication: CEREBROVASCULAR ACCIDENT PROPHYLAXIS
     Route: 048
     Dates: start: 20120601, end: 20120101

REACTIONS (1)
  - GASTROINTESTINAL HAEMORRHAGE [None]
